FAERS Safety Report 4317050-6 (Version None)
Quarter: 2004Q1

REPORT INFORMATION
  Report Type: 
  Country: None (occurrence: None)
  Receive Date: 20040312
  Receipt Date: 20040302
  Transmission Date: 20041129
  Serious: Yes (Death)
  Sender: FDA-Public Use
  Company Number: US-JNJFOC-20040102954

PATIENT
  Age: 89 Year
  Sex: Female
  Weight: 50.8029 kg

DRUGS (3)
  1. RISPERDAL [Suspect]
     Indication: DEPRESSION
  2. RISPERDAL [Suspect]
     Indication: PERSECUTORY DELUSION
  3. ZOLOFT [Concomitant]

REACTIONS (1)
  - PNEUMONIA [None]
